FAERS Safety Report 7362527-2 (Version None)
Quarter: 2011Q1

REPORT INFORMATION
  Report Type: 
  Country: None (occurrence: None)
  Receive Date: 20110318
  Receipt Date: 20110215
  Transmission Date: 20110831
  Serious: Yes (Other)
  Sender: FDA-Public Use
  Company Number: JP-ASTRAZENECA-2011SE14821

PATIENT
  Age: 60 Year
  Sex: Male

DRUGS (5)
  1. MEROPEN [Suspect]
     Indication: CHOLANGITIS
     Route: 042
  2. MEROPEN [Suspect]
     Indication: SEPSIS
     Route: 042
  3. MEROPEN [Suspect]
     Indication: DISSEMINATED INTRAVASCULAR COAGULATION
     Route: 042
  4. MEROPEN [Suspect]
     Indication: PYELONEPHRITIS
     Route: 042
  5. FOY [Concomitant]

REACTIONS (1)
  - THROMBOCYTOPENIA [None]
